FAERS Safety Report 6652282-3 (Version None)
Quarter: 2010Q1

REPORT INFORMATION
  Report Type: 
  Country: None (occurrence: None)
  Receive Date: 20100323
  Receipt Date: 20100308
  Transmission Date: 20100710
  Serious: Yes (Hospitalization, Other)
  Sender: FDA-Public Use
  Company Number: 1713 747-2010-00006

PATIENT
  Sex: Male

DRUGS (2)
  1. DELFLEX W/ DEXTROSE 1.5% LOW MAGNESIUM IN PLASTIC CONTAINER [Suspect]
     Indication: RENAL FAILURE CHRONIC
     Dosage: INTRAPERITONEALLY
     Route: 033
     Dates: start: 20100216
  2. DELFLEX W/ DEXTROSE 2.5% LOW MAGNESIUM IN PLASTIC CONTAINER [Suspect]
     Dosage: INTRAPERITONEALLY
     Route: 033
     Dates: start: 20100216

REACTIONS (2)
  - CATHETER REMOVAL [None]
  - PERITONITIS [None]
